FAERS Safety Report 14450313 (Version 1)
Quarter: 2018Q1

REPORT INFORMATION
  Report Type: Report from Study
  Country: US (occurrence: US)
  Receive Date: 20180129
  Receipt Date: 20180129
  Transmission Date: 20180509
  Serious: No
  Sender: FDA-Public Use
  Company Number: US-ORION CORPORATION ORION PHARMA-ENT 2017-0133

PATIENT
  Sex: Male

DRUGS (1)
  1. ENTACAPONE (TRADE NAME UNKNOWN) [Suspect]
     Active Substance: ENTACAPONE
     Dosage: AT A DOSE OF 24/26 MG, 2 SX DAT
     Route: 065

REACTIONS (2)
  - Dyspnoea [Unknown]
  - Productive cough [Unknown]
